FAERS Safety Report 6552136-7 (Version None)
Quarter: 2010Q1

REPORT INFORMATION
  Report Type: 
  Country: None (occurrence: None)
  Receive Date: 20100126
  Receipt Date: 20100113
  Transmission Date: 20100710
  Serious: Yes (Hospitalization, Other)
  Sender: FDA-Public Use
  Company Number: US-BAYER-US-2007-033487

PATIENT
  Age: 51 Year
  Sex: Male

DRUGS (4)
  1. BETASERON [Suspect]
     Indication: RELAPSING-REMITTING MULTIPLE SCLEROSIS
     Dosage: UNIT DOSE: 8 MIU
     Route: 058
     Dates: start: 20070406, end: 20070901
  2. BETASERON [Suspect]
     Dosage: UNK, UNK
     Route: 058
     Dates: start: 20020910, end: 20070321
  3. TYLENOL [Concomitant]
  4. ^BLOOD THINNER^ [Concomitant]

REACTIONS (12)
  - ABASIA [None]
  - CHROMATURIA [None]
  - COLITIS [None]
  - DECREASED APPETITE [None]
  - GASTROINTESTINAL HAEMORRHAGE [None]
  - HAEMORRHOIDAL HAEMORRHAGE [None]
  - HEPATOMEGALY [None]
  - LIVER DISORDER [None]
  - LIVER FUNCTION TEST ABNORMAL [None]
  - OCULAR ICTERUS [None]
  - PYREXIA [None]
  - URINARY TRACT INFECTION [None]
